FAERS Safety Report 8307836-5 (Version None)
Quarter: 2012Q2

REPORT INFORMATION
  Report Type: 
  Country: None (occurrence: None)
  Receive Date: 20120424
  Receipt Date: 20120412
  Transmission Date: 20120825
  Serious: Yes (Other)
  Sender: FDA-Public Use
  Company Number: US-ACTELION-A-US2010-36490

PATIENT

DRUGS (23)
  1. TRACLEER [Suspect]
     Indication: PULMONARY ARTERIAL HYPERTENSION
     Dosage: 62.5 MG, BID
     Route: 048
     Dates: start: 20100427
  2. ADVAIR DISKUS 100/50 [Concomitant]
  3. NASONEX [Concomitant]
  4. CRESTOR [Concomitant]
  5. HYTRIN [Concomitant]
  6. CALCIUM CITRATE [Concomitant]
  7. ASPIRIN [Concomitant]
  8. ATROVENT [Concomitant]
  9. SYNTHROID [Concomitant]
  10. PLAVIX [Concomitant]
  11. PREVACID [Concomitant]
  12. ULTRACET [Concomitant]
  13. ASCORBIC ACID [Concomitant]
  14. AVELOX [Concomitant]
  15. POTASSIUM CHLORIDE [Concomitant]
  16. MULTIPLE VITAMIN [Concomitant]
  17. STARLIX [Concomitant]
  18. MOBIC [Concomitant]
  19. ALBUTEROL [Concomitant]
  20. ALLEGRA [Concomitant]
  21. GLUCOSAMINE PLUS [Concomitant]
  22. LASIX [Concomitant]
  23. IMDUR [Concomitant]

REACTIONS (3)
  - OEDEMA PERIPHERAL [None]
  - PAIN IN EXTREMITY [None]
  - PNEUMONIA [None]
